FAERS Safety Report 9185749 (Version 1)
Quarter: 2013Q1

REPORT INFORMATION
  Report Type: Spontaneous
  Country: US (occurrence: US)
  Receive Date: 20130325
  Receipt Date: 20130325
  Transmission Date: 20140127
  Serious: Yes (Hospitalization)
  Sender: FDA-Public Use
  Company Number: US-AMGEN-USASP2013015216

PATIENT
  Age: 51 Year
  Sex: Female
  Weight: 64.4 kg

DRUGS (3)
  1. NEULASTA [Suspect]
     Indication: PRODUCT USED FOR UNKNOWN INDICATION
     Dosage: 6 MG, ONE TIME DOSE
     Route: 058
     Dates: start: 20130115, end: 20130115
  2. DOXORUBICIN [Concomitant]
     Indication: BREAST CANCER
     Dosage: 105 MG, ONE TIME DOSE
     Route: 042
     Dates: start: 20130114, end: 20130114
  3. CYCLOPHOSPHAMIDE [Concomitant]
     Indication: BREAST CANCER
     Dosage: 1000 MG, ONE TIME DOSE
     Route: 042
     Dates: start: 20130114, end: 20130114

REACTIONS (3)
  - Febrile neutropenia [Recovered/Resolved]
  - Oral candidiasis [Recovered/Resolved]
  - Therapeutic response decreased [Unknown]
